FAERS Safety Report 6654881-1 (Version None)
Quarter: 2010Q1

REPORT INFORMATION
  Report Type: 
  Country: None (occurrence: None)
  Receive Date: 20100329
  Receipt Date: 20100322
  Transmission Date: 20100710
  Serious: Yes (Hospitalization)
  Sender: FDA-Public Use
  Company Number: US-BIOGENIDEC-2010BI009533

PATIENT
  Age: 33 Year
  Sex: Female
  Weight: 54 kg

DRUGS (1)
  1. AVONEX [Suspect]
     Indication: MULTIPLE SCLEROSIS
     Route: 030
     Dates: start: 20010501, end: 20061224

REACTIONS (5)
  - BRONCHITIS [None]
  - CENTRAL NERVOUS SYSTEM LESION [None]
  - INFLAMMATION [None]
  - PAIN IN EXTREMITY [None]
  - PYREXIA [None]
